FAERS Safety Report 9807804 (Version 1)
Quarter: 2014Q1

REPORT INFORMATION
  Report Type: Spontaneous
  Country: GB (occurrence: GB)
  Receive Date: 20140110
  Receipt Date: 20140110
  Transmission Date: 20141002
  Serious: Yes (Other)
  Sender: FDA-Public Use
  Company Number: GB-JNJFOC-20140102845

PATIENT
  Sex: Male

DRUGS (2)
  1. ABIRATERONE ACETATE [Suspect]
     Indication: PROSTATE CANCER METASTATIC
     Route: 065
  2. CABAZITAXEL [Suspect]
     Indication: PROSTATE CANCER METASTATIC
     Route: 065

REACTIONS (5)
  - Neutropenic sepsis [Unknown]
  - Thrombocytopenia [Unknown]
  - Diarrhoea [Unknown]
  - Fatigue [Unknown]
  - Therapeutic response decreased [Unknown]
